FAERS Safety Report 7377824-4 (Version None)
Quarter: 2011Q1

REPORT INFORMATION
  Report Type: 
  Country: None (occurrence: None)
  Receive Date: 20110328
  Receipt Date: 20110318
  Transmission Date: 20110831
  Serious: Yes (Hospitalization)
  Sender: FDA-Public Use
  Company Number: AU-ROCHE-766454

PATIENT
  Age: 52 Year
  Sex: Female

DRUGS (1)
  1. ACCUTANE [Suspect]
     Dosage: DISCONTINUED
     Route: 048

REACTIONS (3)
  - GASTROINTESTINAL CARCINOMA [None]
  - SUICIDAL IDEATION [None]
  - DEPRESSION [None]
